FAERS Safety Report 11891932 (Version 1)
Quarter: 2016Q1

REPORT INFORMATION
  Report Type: Spontaneous
  Country: US (occurrence: None)
  Receive Date: 20160105
  Receipt Date: 20160105
  Transmission Date: 20160526
  Serious: Yes (Disabling)
  Sender: FDA-Public Use
  Company Number: None

PATIENT
  Age: 20 Year
  Sex: Female
  Weight: 52.16 kg

DRUGS (7)
  1. AEROSPAN [Concomitant]
     Active Substance: FLUNISOLIDE
  2. VITAMIN B COMPLEX [Concomitant]
     Active Substance: CYANOCOBALAMIN\DEXPANTHENOL\NIACINAMIDE\PYRIDOXINE HYDROCHLORIDE\RIBOFLAVIN 5^-PHOSPHATE SODIUM\THIAMINE HYDROCHLORIDE\VITAMIN B COMPLEX
  3. CLARITIN [Concomitant]
     Active Substance: LORATADINE
  4. PROBIOTICS [Concomitant]
     Active Substance: PROBIOTICS NOS
  5. MULTIVITAMIN [Concomitant]
     Active Substance: VITAMINS
  6. AVELOX [Suspect]
     Active Substance: MOXIFLOXACIN HYDROCHLORIDE
     Indication: SINUSITIS
     Dosage: MID 2010 1 PILL
     Route: 048
  7. PROVENTIL [Concomitant]
     Active Substance: ALBUTEROL

REACTIONS (7)
  - Middle insomnia [None]
  - Lip swelling [None]
  - Drug hypersensitivity [None]
  - Eye swelling [None]
  - Vomiting [None]
  - Ocular hyperaemia [None]
  - Cheilitis [None]

NARRATIVE: CASE EVENT DATE: 20100609
